FAERS Safety Report 5230484-0 (Version None)
Quarter: 2007Q1

REPORT INFORMATION
  Report Type: 
  Country: None (occurrence: None)
  Receive Date: 20070206
  Receipt Date: 20070126
  Transmission Date: 20070707
  Serious: Yes (Other)
  Sender: FDA-Public Use
  Company Number: PHEH2006US15571

PATIENT

DRUGS (1)
  1. DESFERAL [Suspect]
     Indication: THALASSAEMIA

REACTIONS (1)
  - ACUTE MYELOID LEUKAEMIA [None]
